FAERS Safety Report 8717696 (Version 3)
Quarter: 2013Q1

REPORT INFORMATION
  Report Type: Report from Study
  Country: JP (occurrence: JP)
  Receive Date: 20120810
  Receipt Date: 20130211
  Transmission Date: 20140127
  Serious: Yes (Other)
  Sender: FDA-Public Use
  Company Number: JP-009507513-2012SP027242

PATIENT
  Age: 61 Year
  Sex: Female
  Weight: 45 kg

DRUGS (19)
  1. PEGINTRON [Suspect]
     Indication: CHRONIC HEPATITIS C
     Dosage: 1.33 MICROGRAM PER KILOGRAM, QW
     Route: 058
     Dates: start: 20120321
  2. PEGINTRON [Suspect]
     Dosage: 30 MICROGRAM PER KILOGRAM, QW
     Route: 058
     Dates: start: 20120411
  3. PEGINTRON [Suspect]
     Dosage: 40 MICROGRAM PER KILOGRAM, QW
     Route: 058
     Dates: start: 20120425
  4. PEGINTRON [Suspect]
     Dosage: 0.89 MICROGRAM PER KILOGRAM, QW
     Route: 058
     Dates: end: 20120605
  5. PEGINTRON [Suspect]
     Dosage: 0.89 MICROGRAM PER KILOGRAM, QW
     Route: 058
     Dates: start: 20120620, end: 20120703
  6. PEGINTRON [Suspect]
     Dosage: 1.33 MICROGRAM PER KILOGRAM, QWUNK
     Route: 058
     Dates: start: 20120704, end: 20120828
  7. PEGINTRON [Suspect]
     Dosage: 0.89 MICROGRAM PER KILOGRAM, QW
     Route: 058
     Dates: start: 20120829, end: 20120904
  8. REBETOL [Suspect]
     Indication: CHRONIC HEPATITIS C
     Dosage: 600 MG, QD
     Route: 048
     Dates: start: 20120321, end: 20120327
  9. REBETOL [Suspect]
     Dosage: 200 MG, QD
     Route: 048
     Dates: start: 20120328, end: 20120605
  10. REBETOL [Suspect]
     Dosage: 200 MG, QD
     Route: 048
     Dates: start: 20120620, end: 20120626
  11. REBETOL [Suspect]
     Dosage: 400 MG, QD
     Route: 048
     Dates: start: 20120627, end: 20120904
  12. TELAVIC [Suspect]
     Indication: CHRONIC HEPATITIS C
     Dosage: 1500 MG, QD
     Route: 048
     Dates: start: 20120321
  13. TELAVIC [Suspect]
     Dosage: 1000 MG, QD
     Route: 048
     Dates: start: 20120530, end: 20120605
  14. ALLEGRA [Concomitant]
     Indication: SKIN DISORDER
     Dosage: 120 MG, QD, FORMULATION: POR
     Route: 048
     Dates: start: 20120326, end: 20120401
  15. ANTEBATE [Concomitant]
     Indication: SKIN DISORDER
     Dosage: AS NEEDED
     Route: 051
     Dates: start: 20120326, end: 20120401
  16. GASMOTIN [Concomitant]
     Indication: DECREASED APPETITE
     Dosage: 15 MG, QD, FORMULATION: POR
     Route: 048
     Dates: start: 20120411
  17. HERBS (UNSPECIFIED) [Concomitant]
     Indication: DECREASED APPETITE
     Dosage: TRADE NAME UNKNOWN; FORMULATION POR
     Route: 048
     Dates: start: 20120404, end: 20120410
  18. [THERAPY UNSPECIFIED] [Concomitant]
     Route: 048
     Dates: start: 20120404, end: 20120410
  19. RIKKUNSHI-TO [Suspect]
     Indication: DECREASED APPETITE
     Dosage: 7.5 MG, QD, FORMULATION: POR
     Route: 048
     Dates: start: 20120404, end: 20120410

REACTIONS (3)
  - Platelet count decreased [Unknown]
  - Neutrophil count decreased [Recovered/Resolved]
  - Haemoglobin decreased [Recovered/Resolved]
